FAERS Safety Report 4517092-1 (Version None)
Quarter: 2004Q4

REPORT INFORMATION
  Report Type: 
  Country: None (occurrence: None)
  Receive Date: 20041202
  Receipt Date: 20030919
  Transmission Date: 20050328
  Serious: Yes (Death, Hospitalization, Disabling)
  Sender: FDA-Public Use
  Company Number: US-ABBOTT-03P-163-0234177-00

PATIENT
  Sex: Male

DRUGS (17)
  1. RITONAVIR SOFT GELATIN CAPSULES [Suspect]
     Indication: HIV INFECTION
     Route: 048
     Dates: start: 20030521, end: 20030905
  2. TIPRANAVIR [Concomitant]
     Indication: HIV INFECTION
     Route: 048
     Dates: end: 20030905
  3. ABACAVIR SULFATE [Concomitant]
     Indication: HIV INFECTION
     Route: 048
     Dates: end: 20030905
  4. TENOFOVIR [Concomitant]
     Indication: HIV INFECTION
     Route: 048
     Dates: end: 20030905
  5. ENFUVIRTIDE [Concomitant]
     Indication: HIV INFECTION
     Route: 030
     Dates: end: 20030905
  6. EFAVIRENZ [Concomitant]
     Indication: HIV INFECTION
     Route: 048
     Dates: start: 20030521, end: 20030905
  7. DAPSONE [Concomitant]
     Indication: INFECTION PROPHYLAXIS
     Route: 048
     Dates: end: 20030905
  8. POTASSIUM CHLORIDE [Concomitant]
     Indication: HYPOKALAEMIA
     Dosage: EVERY OTHER DAY
     Route: 048
     Dates: end: 20030905
  9. METOPROLOL SUCCINATE [Concomitant]
     Indication: HYPERTENSION
     Route: 048
     Dates: end: 20030905
  10. SPIRONOLACTONE [Concomitant]
     Indication: HYPERTENSION
     Route: 048
     Dates: end: 20030905
  11. FUROSEMIDE [Concomitant]
     Indication: HYPERTENSION
     Dosage: EVERY OTHER DAY
     Route: 048
     Dates: end: 20030905
  12. DIGOXIN [Concomitant]
     Indication: CARDIAC FAILURE CONGESTIVE
     Route: 048
     Dates: end: 20030905
  13. ENALAPRIL MALEATE [Concomitant]
     Indication: HYPERTENSION
     Route: 048
     Dates: end: 20030905
  14. VARICONAZONE [Concomitant]
     Indication: ASPERGILLOSIS
     Route: 048
     Dates: end: 20030905
  15. STAVUDINE [Concomitant]
     Indication: HIV INFECTION
     Route: 048
     Dates: start: 20030521, end: 20030905
  16. VALCYTE [Concomitant]
     Indication: ANTIVIRAL PROPHYLAXIS
     Route: 048
     Dates: end: 20030905
  17. AZITHROMYCIN [Concomitant]
     Indication: ANTIBACTERIAL PROPHYLAXIS
     Route: 048
     Dates: end: 20030905

REACTIONS (6)
  - BLOOD PH DECREASED [None]
  - KAPOSI'S SARCOMA [None]
  - PNEUMONIA [None]
  - RENAL FAILURE [None]
  - RESPIRATORY FAILURE [None]
  - SARCOMA [None]
